FAERS Safety Report 15950120 (Version 2)
Quarter: 2019Q1

REPORT INFORMATION
  Report Type: Spontaneous
  Country: ES (occurrence: ES)
  Receive Date: 20190211
  Receipt Date: 20190215
  Transmission Date: 20190417
  Serious: Yes (Other)
  Sender: FDA-Public Use
  Company Number: ES-PFIZER INC-2019059140

PATIENT
  Age: 62 Year
  Sex: Male

DRUGS (8)
  1. ACETYLSALICYLIC ACID [Interacting]
     Active Substance: ASPIRIN
     Indication: HYPERTROPHIC CARDIOMYOPATHY
     Dosage: 100 MG, 1X/DAY
     Route: 065
  2. TRAZODONE [Interacting]
     Active Substance: TRAZODONE HYDROCHLORIDE
     Indication: INSOMNIA
     Dosage: 100 MG, UNK
     Route: 065
  3. ATENOLOL. [Interacting]
     Active Substance: ATENOLOL
     Indication: ESSENTIAL HYPERTENSION
     Dosage: 100 MG AT BREAKFAST AND 50 MG AT DINNER
     Route: 065
  4. SERTRALINE HCL [Interacting]
     Active Substance: SERTRALINE HYDROCHLORIDE
     Indication: PSYCHOTIC DISORDER
     Dosage: 50 MG, UNK
     Route: 065
  5. DIAZEPAM. [Interacting]
     Active Substance: DIAZEPAM
     Indication: INSOMNIA
     Dosage: 5 MG, UNK
     Route: 065
  6. OXYCODONE [Interacting]
     Active Substance: OXYCODONE
     Indication: MYOFASCIAL PAIN SYNDROME
     Dosage: 15 / 7.5 MG EVERY 12 HOURS
     Route: 065
  7. DILTIAZEM HCL [Suspect]
     Active Substance: DILTIAZEM HYDROCHLORIDE
     Indication: HYPERTROPHIC CARDIOMYOPATHY
     Dosage: 120 MG, EVERY 12 HOURS
     Route: 065
  8. AMITRIPTYLINE [Interacting]
     Active Substance: AMITRIPTYLINE
     Indication: MYOFASCIAL PAIN SYNDROME
     Dosage: 10 MG, UNK
     Route: 065

REACTIONS (4)
  - Drug interaction [Unknown]
  - Incontinence [Unknown]
  - Loss of consciousness [Unknown]
  - Fall [Unknown]
